FAERS Safety Report 19086740 (Version 1)
Quarter: 2021Q2

REPORT INFORMATION
  Report Type: Spontaneous
  Country: US (occurrence: US)
  Receive Date: 20210401
  Receipt Date: 20210401
  Transmission Date: 20210717
  Serious: Yes (Other)
  Sender: FDA-Public Use
  Company Number: None

PATIENT
  Sex: Female

DRUGS (3)
  1. TEMOZOLOMIDE. [Suspect]
     Active Substance: TEMOZOLOMIDE
     Indication: BRAIN NEOPLASM MALIGNANT
     Dosage: FOR 5 DAYS
     Route: 048
     Dates: start: 20200515
  2. TEMOZOLOMIDE. [Suspect]
     Active Substance: TEMOZOLOMIDE
     Indication: BRAIN NEOPLASM MALIGNANT
     Dosage: FOR 5 DAYS
     Route: 048
     Dates: start: 20200515
  3. LEVETIRACETA TAB 500 MG [Concomitant]
     Dates: start: 20200828

REACTIONS (1)
  - Fatigue [None]
